FAERS Safety Report 6839200-X (Version None)
Quarter: 2010Q3

REPORT INFORMATION
  Report Type: 
  Country: None (occurrence: None)
  Receive Date: 20100709
  Receipt Date: 20100628
  Transmission Date: 20110219
  Serious: Yes (Other)
  Sender: FDA-Public Use
  Company Number: 2010JP003587

PATIENT
  Age: 60 Year
  Sex: Female

DRUGS (8)
  1. PROGRAF [Suspect]
     Indication: RHEUMATOID ARTHRITIS
     Dosage: 2 MG, ORAL
  2. AZULFIDINE [Suspect]
  3. CELECOXIB [Concomitant]
  4. PREDONINE (PREDNISOLONE ACETATE) [Concomitant]
  5. MUCOSOLVAN (AMBROXOL HYDROCHLORIDE) [Concomitant]
  6. BISOLVON (BROMHEXINE HYDROCHLORIDE) [Concomitant]
  7. CELOOP KAYAKU (TEPRENONE) [Concomitant]
  8. ZYRTEC [Concomitant]

REACTIONS (1)
  - NEPHROTIC SYNDROME [None]
